FAERS Safety Report 13628257 (Version 1)
Quarter: 2017Q2

REPORT INFORMATION
  Report Type: Spontaneous
  Country: US (occurrence: US)
  Receive Date: 20170531
  Receipt Date: 20170531
  Transmission Date: 20170830
  Serious: Yes (Hospitalization)
  Sender: FDA-Public Use
  Company Number: US-ASTELLAS-1836356

PATIENT
  Age: 74 Year
  Sex: Female

DRUGS (7)
  1. ZOLOFT [Concomitant]
     Active Substance: SERTRALINE HYDROCHLORIDE
  2. MEGACE [Concomitant]
     Active Substance: MEGESTROL ACETATE
     Route: 048
  3. ONDANSETRON [Concomitant]
     Active Substance: ONDANSETRON
  4. TARCEVA [Suspect]
     Active Substance: ERLOTINIB HYDROCHLORIDE
     Indication: LUNG NEOPLASM MALIGNANT
     Route: 048
  5. LORAZEPAM. [Concomitant]
     Active Substance: LORAZEPAM
  6. TRAMADOL HCL [Concomitant]
     Active Substance: TRAMADOL HYDROCHLORIDE
  7. TARCEVA [Suspect]
     Active Substance: ERLOTINIB HYDROCHLORIDE
     Route: 048

REACTIONS (3)
  - Dehydration [Unknown]
  - Decreased appetite [Unknown]
  - Nausea [Unknown]
